FAERS Safety Report 7324317-6 (Version None)
Quarter: 2011Q1

REPORT INFORMATION
  Report Type: 
  Country: None (occurrence: None)
  Receive Date: 20110218
  Receipt Date: 20110209
  Transmission Date: 20110831
  Serious: Yes (Hospitalization, Other)
  Sender: FDA-Public Use
  Company Number: JPI-P-013862

PATIENT
  Age: 59 Year
  Sex: Male
  Weight: 86.1834 kg

DRUGS (11)
  1. VENLAFAXINE [Concomitant]
  2. HYDROCODONE BITARTRATE AND ACETAMINOPHEN [Concomitant]
  3. MORPHINE SULFATE AND NALTREXONE HYDROCHLORIDE [Concomitant]
  4. GABAPENTIN [Concomitant]
  5. QUETIAPINE FUMARATE [Concomitant]
  6. METHOCARBAMOL [Concomitant]
  7. XYREM [Suspect]
     Indication: SOMNOLENCE
     Dosage: 3 GM (1.5 GM, 2 IN 1 D),  6 GM (3 GM, 2 IN 1 D), ORAL
     Route: 048
     Dates: start: 20100401
  8. ATORVASTATIN [Concomitant]
  9. L-METHYLFOLATE [Concomitant]
  10. GLYCOPYRROLATE [Concomitant]
  11. LAMOTRIGINE [Concomitant]

REACTIONS (6)
  - ABDOMINAL PAIN UPPER [None]
  - CHOLECYSTECTOMY [None]
  - UMBILICAL HERNIA [None]
  - VOMITING [None]
  - BACK PAIN [None]
  - DEHYDRATION [None]
